FAERS Safety Report 19718438 (Version 1)
Quarter: 2021Q3

REPORT INFORMATION
  Report Type: Spontaneous
  Country: US (occurrence: US)
  Receive Date: 20210818
  Receipt Date: 20210818
  Transmission Date: 20211014
  Serious: Yes (Life-Threatening, Hospitalization)
  Sender: FDA-Public Use
  Company Number: US-SAMSUNG BIOEPIS-SB-2021-19546

PATIENT
  Age: 10 Year
  Sex: Male

DRUGS (26)
  1. INFLIXIMAB [Suspect]
     Active Substance: INFLIXIMAB
     Indication: CROHN^S DISEASE
     Dosage: UNKNOWN
     Route: 065
  2. USTEKINUMAB [Suspect]
     Active Substance: USTEKINUMAB
     Indication: CROHN^S DISEASE
     Route: 042
  3. USTEKINUMAB [Suspect]
     Active Substance: USTEKINUMAB
     Dosage: SOLUTION FORMULATION: 0.104 MG/ML, RATE FOR IV FORMULATION: 20 ML/H, TIME: 15 MINUTES, VOLUME ADMINI
     Route: 042
  4. USTEKINUMAB [Suspect]
     Active Substance: USTEKINUMAB
     Dosage: SOLUTION FORMULATION: 90 MG/ML, RATE FOR IV FORMULATION: NA, TIME: 0 MINUTES, VOLUME ADMINISTERED: 0
     Route: 058
  5. FOLIC ACID. [Concomitant]
     Active Substance: FOLIC ACID
     Indication: PRODUCT USED FOR UNKNOWN INDICATION
     Dosage: UNKNOWN
     Route: 065
  6. USTEKINUMAB [Suspect]
     Active Substance: USTEKINUMAB
     Dosage: SOLUTION FORMULATION: 0.010 MG/ML, RATE FOR IV FORMULATION: 10 ML/H, TIME: 15 MINUTES, VOLUME ADMINI
     Route: 042
  7. USTEKINUMAB [Suspect]
     Active Substance: USTEKINUMAB
     Dosage: SOLUTION FORMULATION: 0.010 MG/ML, RATE FOR IV FORMULATION: 20 ML/H, TIME: 15 MINUTES, VOLUME ADMINI
     Route: 042
  8. USTEKINUMAB [Suspect]
     Active Substance: USTEKINUMAB
     Dosage: SOLUTION FORMULATION: 0.104 MG/ML, RATE FOR IV FORMULATION: 40 ML/H, TIME: 15 MINUTES, VOLUME ADMINI
     Route: 042
  9. USTEKINUMAB [Suspect]
     Active Substance: USTEKINUMAB
     Dosage: SOLUTION FORMULATION: 1.032 MG/ML, RATE FOR IV FORMULATION: 10 ML/H, TIME: 15 MINUTES, VOLUME ADMINI
     Route: 042
  10. USTEKINUMAB [Suspect]
     Active Substance: USTEKINUMAB
     Dosage: SOLUTION FORMULATION: 90 MG/ML, RATE FOR IV FORMULATION: NA, TIME: 15 MINUTES, VOLUME ADMINISTERED:
     Route: 058
  11. OMEPRAZOLE. [Concomitant]
     Active Substance: OMEPRAZOLE
     Indication: PRODUCT USED FOR UNKNOWN INDICATION
     Dosage: UNKNOWN
     Route: 065
  12. USTEKINUMAB [Suspect]
     Active Substance: USTEKINUMAB
     Route: 058
  13. USTEKINUMAB [Suspect]
     Active Substance: USTEKINUMAB
     Dosage: SOLUTION FORMULATION: 1.032 MG/ML, RATE FOR IV FORMULATION: 80 ML/H, TIME: 174.375 MINUTES, VOLUME A
     Route: 042
  14. USTEKINUMAB [Suspect]
     Active Substance: USTEKINUMAB
     Dosage: SOLUTION FORMULATION: 90 MG/ML, RATE FOR IV FORMULATION: NA, TIME: 15 MINUTES, VOLUME ADMINISTERED:
     Route: 058
  15. PREDNISONE. [Concomitant]
     Active Substance: PREDNISONE
     Indication: PRODUCT USED FOR UNKNOWN INDICATION
     Dosage: UNKNOWN
     Route: 065
  16. PREDNISONE. [Concomitant]
     Active Substance: PREDNISONE
     Dosage: TAPER OF
     Route: 065
  17. USTEKINUMAB [Suspect]
     Active Substance: USTEKINUMAB
     Dosage: SOLUTION FORMULATION: 0.104 MG/ML, RATE FOR IV FORMULATION: 5 ML/H, TIME: 15 MINUTES, VOLUME ADMINIS
     Route: 042
  18. USTEKINUMAB [Suspect]
     Active Substance: USTEKINUMAB
     Dosage: SOLUTION FORMULATION: 1.032 MG/ML, RATE FOR IV FORMULATION: 40 ML/H, TIME: 15 MINUTES, VOLUME ADMINI
     Route: 042
  19. USTEKINUMAB [Suspect]
     Active Substance: USTEKINUMAB
     Dosage: SOLUTION FORMULATION: 0.010 MG/ML, RATE FOR IV FORMULATION: 2.5 ML/H, TIME: 15 MINUTES, VOLUME ADMIN
     Route: 042
  20. USTEKINUMAB [Suspect]
     Active Substance: USTEKINUMAB
     Dosage: SOLUTION FORMULATION: 0.104 MG/ML, RATE FOR IV FORMULATION: 10 ML/H, TIME: 15 MINUTES, VOLUME ADMINI
     Route: 042
  21. USTEKINUMAB [Suspect]
     Active Substance: USTEKINUMAB
     Dosage: SOLUTION FORMULATION: 90 MG/ML, RATE FOR IV FORMULATION: NA, TIME: 15 MINUTES, VOLUME ADMINISTERED:
     Route: 058
  22. METHOTREXATE. [Concomitant]
     Active Substance: METHOTREXATE
     Indication: PRODUCT USED FOR UNKNOWN INDICATION
     Dosage: UNKNOWN
     Route: 065
  23. INFLIXIMAB [Suspect]
     Active Substance: INFLIXIMAB
     Dosage: UNKNOWN
     Route: 065
  24. USTEKINUMAB [Suspect]
     Active Substance: USTEKINUMAB
     Dosage: SOLUTION FORMULATION: 0.010 MG/ML, RATE FOR IV FORMULATION: 5 ML/H, TIME: 15 MINUTES, VOLUME ADMINIS
     Route: 042
  25. USTEKINUMAB [Suspect]
     Active Substance: USTEKINUMAB
     Dosage: SOLUTION FORMULATION: 1.032 MG/ML, RATE FOR IV FORMULATION: 20 ML/H, TIME: 15 MINUTES, VOLUME ADMINI
     Route: 042
  26. USTEKINUMAB [Suspect]
     Active Substance: USTEKINUMAB
     Dosage: SOLUTION FORMULATION: 90 MG/ML, RATE FOR IV FORMULATION: NA, TIME: 15 MINUTES, VOLUME ADMINISTERED:
     Route: 058

REACTIONS (11)
  - Hypersensitivity [Recovered/Resolved]
  - Drug intolerance [Unknown]
  - Anaphylactic reaction [Recovered/Resolved]
  - Abdominal pain [Recovered/Resolved]
  - Throat irritation [Recovered/Resolved]
  - Anxiety [Unknown]
  - Drug specific antibody present [Unknown]
  - Therapeutic product effect incomplete [Unknown]
  - Dyspnoea [Recovered/Resolved]
  - Type I hypersensitivity [Unknown]
  - Drug level abnormal [Unknown]
